FAERS Safety Report 19352602 (Version 2)
Quarter: 2021Q2

REPORT INFORMATION
  Report Type: Report from Study
  Country: US (occurrence: US)
  Receive Date: 20210601
  Receipt Date: 20210609
  Transmission Date: 20210717
  Serious: No
  Sender: FDA-Public Use
  Company Number: US-SA-2021SA177898

PATIENT
  Age: 41 Year
  Sex: Female

DRUGS (1)
  1. TERIFLUNOMIDE. [Suspect]
     Active Substance: TERIFLUNOMIDE
     Indication: MULTIPLE SCLEROSIS
     Dosage: 14 MG, QD
     Route: 048
     Dates: start: 20210318, end: 20210527

REACTIONS (4)
  - Chest pain [Not Recovered/Not Resolved]
  - Palpitations [Unknown]
  - Blood alkaline phosphatase increased [Not Recovered/Not Resolved]
  - Electrocardiogram abnormal [Unknown]
